FAERS Safety Report 5185330-0 (Version None)
Quarter: 2006Q4

REPORT INFORMATION
  Report Type: 
  Country: None (occurrence: None)
  Receive Date: 20061220
  Receipt Date: 20051109
  Transmission Date: 20070319
  Serious: Yes (Hospitalization, Other)
  Sender: FDA-Public Use
  Company Number: PHBS2005JP16429

PATIENT
  Age: 63 Year
  Sex: Female

DRUGS (14)
  1. METHYLPREDNISOLONE [Concomitant]
     Dosage: 1 G/D
  2. ZOTEPINE [Concomitant]
     Dosage: 50 MG/D
     Dates: start: 20050101
  3. MIANSERIN [Concomitant]
     Dosage: 30 MG/D
     Dates: start: 20050301
  4. MIANSERIN [Concomitant]
     Dosage: 60 MG/D
     Dates: start: 20050101
  5. VALPROATE SODIUM [Concomitant]
     Dosage: 400 MG/D
  6. MILNACIPRAN [Concomitant]
     Dosage: 75 MG/D
  7. RISPERIDONE [Concomitant]
     Dosage: 0.5 MG/D
  8. NEORAL [Suspect]
     Indication: INTERSTITIAL LUNG DISEASE
     Dosage: 200 MG/D
     Route: 048
     Dates: start: 20050210, end: 20050831
  9. NEORAL [Suspect]
     Dosage: 150 MG/D
     Route: 048
     Dates: start: 20050831
  10. NEORAL [Suspect]
     Dosage: 150 MG/D
     Route: 048
     Dates: start: 20040101, end: 20050210
  11. LIMAS [Suspect]
     Indication: BIPOLAR DISORDER
     Dosage: 400 MG/D
     Route: 048
     Dates: start: 20050310, end: 20050312
  12. LIMAS [Suspect]
     Route: 048
  13. LIMAS [Suspect]
     Dosage: 600 MG/D
     Route: 048
     Dates: start: 20050101, end: 20050309
  14. PREDONINE [Concomitant]
     Indication: INTERSTITIAL LUNG DISEASE
     Dosage: 40 MG/D
     Route: 048
     Dates: start: 20041101

REACTIONS (34)
  - ABNORMAL BEHAVIOUR [None]
  - ACTIVITIES OF DAILY LIVING IMPAIRED [None]
  - AGGRESSION [None]
  - ANTIPSYCHOTIC DRUG LEVEL INCREASED [None]
  - ANXIETY [None]
  - BETA 2 MICROGLOBULIN URINE INCREASED [None]
  - BLOOD CREATININE INCREASED [None]
  - BLOOD UREA INCREASED [None]
  - DELUSION [None]
  - DEPRESSION [None]
  - DISEASE PROGRESSION [None]
  - DISORIENTATION [None]
  - DRUG INTERACTION [None]
  - ELEVATED MOOD [None]
  - EUPHORIC MOOD [None]
  - HERPES ZOSTER [None]
  - HYPERKINESIA [None]
  - HYPOCHONDRIASIS [None]
  - HYPOMANIA [None]
  - IRRITABILITY [None]
  - LIFE SUPPORT [None]
  - LOGORRHOEA [None]
  - MANIA [None]
  - MUSCULAR WEAKNESS [None]
  - OBSTRUCTIVE AIRWAYS DISORDER [None]
  - PERSECUTORY DELUSION [None]
  - PNEUMONIA BACTERIAL [None]
  - PRODUCTIVE COUGH [None]
  - PSYCHIATRIC SYMPTOM [None]
  - PSYCHOMOTOR HYPERACTIVITY [None]
  - PSYCHOTIC DISORDER [None]
  - RENAL DISORDER [None]
  - STUPOR [None]
  - TREMOR [None]
